FAERS Safety Report 25426703 (Version 2)
Quarter: 2025Q3

REPORT INFORMATION
  Report Type: Spontaneous
  Country: AR (occurrence: AR)
  Receive Date: 20250612
  Receipt Date: 20250729
  Transmission Date: 20251020
  Serious: Yes (Hospitalization, Other)
  Sender: NOVARTIS
  Company Number: AR-002147023-NVSC2025AR091477

PATIENT
  Sex: Female

DRUGS (4)
  1. IMATINIB [Suspect]
     Active Substance: IMATINIB
     Indication: Chronic myeloid leukaemia
     Dosage: 400 MG, Q12H
     Route: 065
     Dates: start: 2022, end: 2023
  2. IMATINIB [Suspect]
     Active Substance: IMATINIB
     Dosage: 400 MG, Q24H
     Route: 065
     Dates: start: 202311, end: 202403
  3. DASATINIB [Suspect]
     Active Substance: DASATINIB
     Indication: Product used for unknown indication
     Route: 065
     Dates: start: 202409
  4. ASCIMINIB [Concomitant]
     Active Substance: ASCIMINIB
     Indication: Product used for unknown indication
     Dosage: 40 MG, Q12H
     Route: 048

REACTIONS (12)
  - Anaemia [Not Recovered/Not Resolved]
  - White blood cell count decreased [Not Recovered/Not Resolved]
  - Platelet count decreased [Not Recovered/Not Resolved]
  - Hyperglycaemia [Not Recovered/Not Resolved]
  - Drug ineffective [Not Recovered/Not Resolved]
  - Drug intolerance [Not Recovered/Not Resolved]
  - Pneumonia [Not Recovered/Not Resolved]
  - Cytopenia [Unknown]
  - Cardiac failure congestive [Unknown]
  - Blood creatinine increased [Unknown]
  - Haematocrit decreased [Unknown]
  - Haemoglobin decreased [Unknown]
